FAERS Safety Report 9604277 (Version 2)
Quarter: 2013Q4

REPORT INFORMATION
  Report Type: Spontaneous
  Country: US (occurrence: US)
  Receive Date: 20131008
  Receipt Date: 20131008
  Transmission Date: 20140711
  Serious: Yes (Life-Threatening, Other)
  Sender: FDA-Public Use
  Company Number: PHEH2012US014276

PATIENT
  Sex: Female

DRUGS (10)
  1. VALTURNA [Suspect]
     Indication: HYPERTENSION
     Dates: start: 20101011, end: 20120719
  2. BYSTOLIC [Concomitant]
     Dosage: 20 MG, BID
  3. HYDROCHLOROTHIAZIDE [Concomitant]
     Dosage: 25 MG, QD
  4. SPIRONOLACTONE [Concomitant]
     Dosage: 25 MG, QD
  5. AMLODIN [Concomitant]
     Dosage: 10 MG, QD
  6. CRESTOR [Concomitant]
     Dosage: 5 MG, QD
  7. GLIPIZIDE [Concomitant]
     Dosage: 10 MG, QD
  8. VICTOZA [Concomitant]
     Dosage: 1.8 MG, SHOT QD
  9. LAMPIS [Concomitant]
     Dosage: 20 MG, SHOT QD
  10. ASPIRIN [Concomitant]

REACTIONS (12)
  - Apparent death [Unknown]
  - Renal failure chronic [Unknown]
  - Renal failure [Unknown]
  - Renal impairment [Unknown]
  - Injury [Unknown]
  - Pain [Unknown]
  - Anxiety [Unknown]
  - Anhedonia [Unknown]
  - Hypotension [Unknown]
  - Blood potassium increased [Unknown]
  - Cardiovascular disorder [Unknown]
  - Cerebrovascular accident [Unknown]
